FAERS Safety Report 19559629 (Version 1)
Quarter: 2021Q3

REPORT INFORMATION
  Report Type: Spontaneous
  Country: JP (occurrence: JP)
  Receive Date: 20210715
  Receipt Date: 20210715
  Transmission Date: 20211014
  Serious: Yes (Hospitalization)
  Sender: FDA-Public Use
  Company Number: JP-TEVA-2021-JP-1931193

PATIENT
  Age: 74 Year
  Sex: Male

DRUGS (2)
  1. PREDNISOLONE. [Suspect]
     Active Substance: PREDNISOLONE
     Indication: ATHEROEMBOLISM
     Route: 065
  2. WARFARIN [Suspect]
     Active Substance: WARFARIN
     Indication: CARDIAC VENTRICULAR THROMBOSIS
     Route: 065

REACTIONS (12)
  - Enterobacter infection [Recovered/Resolved]
  - Acinetobacter infection [Recovered/Resolved]
  - Bacterial infection [Recovered/Resolved]
  - Mucosal erosion [Recovered/Resolved]
  - Enterococcal infection [Recovered/Resolved]
  - Peritoneal cloudy effluent [Recovered/Resolved]
  - End stage renal disease [Recovered/Resolved]
  - Blue toe syndrome [Recovered/Resolved]
  - Large intestine erosion [Recovered/Resolved]
  - Atheroembolism [Recovered/Resolved]
  - Bacterial translocation [Recovered/Resolved]
  - Peritonitis bacterial [Recovered/Resolved]
